FAERS Safety Report 7324116-5 (Version None)
Quarter: 2011Q1

REPORT INFORMATION
  Report Type: 
  Country: None (occurrence: None)
  Receive Date: 20110201
  Receipt Date: 20100412
  Transmission Date: 20110831
  Serious: Yes (Hospitalization, Other)
  Sender: FDA-Public Use
  Company Number: WAES 1004USA01692

PATIENT
  Age: 56 Year
  Sex: Male

DRUGS (3)
  1. PRIMAXIN [Suspect]
     Indication: WHITE BLOOD CELL COUNT INCREASED
     Dosage: 500 MG/Q8H/IV
     Route: 042
     Dates: start: 20100402, end: 20100409
  2. ZYVOX [Concomitant]
  3. CEFEPIME [Concomitant]

REACTIONS (1)
  - RASH [None]
